FAERS Safety Report 7265665-8 (Version None)
Quarter: 2011Q1

REPORT INFORMATION
  Report Type: 
  Country: None (occurrence: None)
  Receive Date: 20110120
  Receipt Date: 20110111
  Transmission Date: 20110831
  Serious: Yes (Death, Life-Threatening, Hospitalization, Other)
  Sender: FDA-Public Use
  Company Number: WAES 1010USA00085

PATIENT
  Age: 68 Year
  Sex: Female

DRUGS (15)
  1. ASPIRIN [Concomitant]
  2. INSULIN [Concomitant]
  3. PLAVIX [Concomitant]
  4. BICARBONATE [Concomitant]
  5. KLACID [Concomitant]
  6. EPINEPHRINE [Concomitant]
  7. LASIX [Concomitant]
  8. ROCEPHIN [Concomitant]
  9. PLACEBO [Suspect]
     Indication: ACUTE CORONARY SYNDROME
     Dosage: PO
     Route: 048
     Dates: start: 20100702, end: 20100725
  10. COMBIVENT [Concomitant]
  11. NAC DIAGNOSTIC REAGENT [Concomitant]
  12. PULMICORT [Concomitant]
  13. DOBUTAMINE HCL [Concomitant]
  14. DOPAMINE HCL [Concomitant]
  15. VYTORIN [Suspect]
     Indication: ACUTE CORONARY SYNDROME
     Dosage: 10-40 MG/DAILY PO
     Route: 048
     Dates: start: 20100702, end: 20100725

REACTIONS (3)
  - RHABDOMYOLYSIS [None]
  - BLOOD LACTATE DEHYDROGENASE INCREASED [None]
  - RESPIRATORY ARREST [None]
